FAERS Safety Report 12683304 (Version 1)
Quarter: 2016Q3

REPORT INFORMATION
  Report Type: Spontaneous
  Country: US (occurrence: None)
  Receive Date: 20160824
  Receipt Date: 20160824
  Transmission Date: 20161109
  Serious: Yes (Other)
  Sender: FDA-Public Use
  Company Number: None

PATIENT
  Age: 69 Year
  Sex: Female

DRUGS (1)
  1. LEXISCAN [Suspect]
     Active Substance: REGADENOSON
     Indication: CARDIAC STRESS TEST
     Dosage: 0.4MG/5ML ONCE INTRAVENOUS
     Route: 042
     Dates: start: 20160728

REACTIONS (1)
  - Atrioventricular block [None]

NARRATIVE: CASE EVENT DATE: 20160728
